FAERS Safety Report 5569512-1 (Version None)
Quarter: 2007Q4

REPORT INFORMATION
  Report Type: 
  Country: None (occurrence: None)
  Receive Date: 20071220
  Receipt Date: 20071211
  Transmission Date: 20080405
  Serious: Yes (Hospitalization, Other)
  Sender: FDA-Public Use
  Company Number: CH-AMGEN-UK257069

PATIENT
  Sex: Male

DRUGS (1)
  1. NEUPOGEN [Suspect]
     Indication: NEUTROPENIA

REACTIONS (4)
  - DYSPNOEA [None]
  - EXTRAMEDULLARY HAEMOPOIESIS [None]
  - EXTRASKELETAL OSSIFICATION [None]
  - PULMONARY FIBROSIS [None]
